FAERS Safety Report 19212766 (Version 2)
Quarter: 2021Q2

REPORT INFORMATION
  Report Type: Report from Study
  Country: IL (occurrence: IL)
  Receive Date: 20210504
  Receipt Date: 20210511
  Transmission Date: 20210717
  Serious: Yes (Other)
  Sender: FDA-Public Use
  Company Number: IL-TAKEDA-2021TUS027406

PATIENT
  Sex: Female

DRUGS (1)
  1. VEDOLIZUMAB [Suspect]
     Active Substance: VEDOLIZUMAB
     Indication: INFLAMMATORY BOWEL DISEASE
     Dosage: UNK
     Route: 042
     Dates: start: 20190211

REACTIONS (3)
  - Cellulitis [Recovered/Resolved]
  - Respiratory tract infection bacterial [Recovered/Resolved]
  - Dermatitis contact [Recovered/Resolved with Sequelae]

NARRATIVE: CASE EVENT DATE: 20190819
